FAERS Safety Report 7413702-X (Version None)
Quarter: 2011Q2

REPORT INFORMATION
  Report Type: 
  Country: None (occurrence: None)
  Receive Date: 20110413
  Receipt Date: 20110404
  Transmission Date: 20111010
  Serious: Yes (Hospitalization)
  Sender: FDA-Public Use
  Company Number: DE-ROCHE-769878

PATIENT
  Sex: Female

DRUGS (9)
  1. VOLTAREN [Concomitant]
     Dates: start: 20060101
  2. PANTOZOL [Concomitant]
     Dates: start: 20060101
  3. TOCILIZUMAB [Suspect]
     Indication: FELTY'S SYNDROME
     Route: 065
     Dates: start: 20100506
  4. METHOTREXATE [Suspect]
     Indication: FELTY'S SYNDROME
     Route: 058
     Dates: start: 20080816
  5. CALCIUM/VITAMIN D3 [Concomitant]
     Dates: start: 20060101
  6. URBASON [Concomitant]
     Dates: start: 20100101
  7. TORSEMIDE [Concomitant]
     Dates: start: 20090301
  8. METHOTREXATE [Suspect]
     Route: 058
     Dates: start: 20100625, end: 20100701
  9. METHOTREXATE [Suspect]
     Route: 058
     Dates: start: 20100804

REACTIONS (1)
  - COLITIS ISCHAEMIC [None]
